FAERS Safety Report 5715423-8 (Version None)
Quarter: 2008Q2

REPORT INFORMATION
  Report Type: 
  Country: None (occurrence: None)
  Receive Date: 20080422
  Receipt Date: 20080411
  Transmission Date: 20081010
  Serious: Yes (Hospitalization)
  Sender: FDA-Public Use
  Company Number: 2008BI003840

PATIENT
  Age: 46 Year
  Sex: Female

DRUGS (2)
  1. AVONEX [Suspect]
     Indication: MULTIPLE SCLEROSIS
     Dosage: 30 UG;QW;IM
     Route: 030
     Dates: start: 20080114, end: 20080205
  2. DIET PILLS [Concomitant]

REACTIONS (4)
  - AFFECT LABILITY [None]
  - BIPOLAR II DISORDER [None]
  - DEPRESSION [None]
  - MOOD SWINGS [None]
